FAERS Safety Report 4327839-5 (Version None)
Quarter: 2004Q1

REPORT INFORMATION
  Report Type: 
  Country: None (occurrence: None)
  Receive Date: 20040325
  Receipt Date: 20040315
  Transmission Date: 20041129
  Serious: Yes (Hospitalization)
  Sender: FDA-Public Use
  Company Number: GB-JNJFOC-20040303316

PATIENT
  Sex: Female

DRUGS (2)
  1. REMICADE [Suspect]
     Indication: RHEUMATOID ARTHRITIS
     Dosage: INTRAVENOUS
     Route: 042
  2. HYDROXYCHLOROQUINE SULFATE [Concomitant]

REACTIONS (4)
  - FEELING HOT [None]
  - HYPERHIDROSIS [None]
  - RESPIRATORY FUME INHALATION DISORDER [None]
  - TEARFULNESS [None]
